FAERS Safety Report 8255400-9 (Version None)
Quarter: 2012Q2

REPORT INFORMATION
  Report Type: 
  Country: None (occurrence: None)
  Receive Date: 20120403
  Receipt Date: 20120326
  Transmission Date: 20120825
  Serious: Yes (Hospitalization, Other)
  Sender: FDA-Public Use
  Company Number: US-ASTELLAS-2012US003022

PATIENT
  Age: 71 Year
  Sex: Male

DRUGS (2)
  1. TARCEVA [Suspect]
     Indication: NEOPLASM MALIGNANT
     Dosage: 150 MG, UID/QD
     Route: 048
  2. METFORMIN HCL [Suspect]
     Indication: PRODUCT USED FOR UNKNOWN INDICATION
     Dosage: 1500 MG, UID/QD
     Route: 048

REACTIONS (8)
  - HOSPITALISATION [None]
  - DIARRHOEA [None]
  - INTENTIONAL DRUG MISUSE [None]
  - METASTASES TO CENTRAL NERVOUS SYSTEM [None]
  - FUNGAL SKIN INFECTION [None]
  - OFF LABEL USE [None]
  - CONSTIPATION [None]
  - HAEMOGLOBIN DECREASED [None]
